FAERS Safety Report 18777810 (Version 1)
Quarter: 2021Q1

REPORT INFORMATION
  Report Type: Spontaneous
  Country: US (occurrence: US)
  Receive Date: 20210122
  Receipt Date: 20210122
  Transmission Date: 20210419
  Serious: No
  Sender: FDA-Public Use
  Company Number: 2020SGN03882

PATIENT
  Age: 61 Year
  Sex: Female

DRUGS (4)
  1. TUKYSA [Suspect]
     Active Substance: TUCATINIB
     Indication: PRODUCT USED FOR UNKNOWN INDICATION
     Dosage: UNK
     Route: 065
  2. TUKYSA [Suspect]
     Active Substance: TUCATINIB
     Dosage: 150 MG, TID
  3. ABRAXANE [Suspect]
     Active Substance: PACLITAXEL
     Dosage: 60 MG WEEKLY, 3 WEEKS ON AND 1 WEEK OFF
  4. ABRAXANE [Suspect]
     Active Substance: PACLITAXEL
     Dosage: UNK

REACTIONS (2)
  - Product use issue [Unknown]
  - Liver function test increased [Recovered/Resolved]
